FAERS Safety Report 7874497-9 (Version None)
Quarter: 2011Q4

REPORT INFORMATION
  Report Type: 
  Country: None (occurrence: None)
  Receive Date: 20111030
  Receipt Date: 20110520
  Transmission Date: 20120403
  Serious: No
  Sender: FDA-Public Use
  Company Number: US-AMGEN-USASP2011026599

PATIENT
  Age: 45 Year
  Sex: Female

DRUGS (7)
  1. ADVAIR DISKUS 100/50 [Concomitant]
  2. PHENAZOPYRIDINE HCL TAB [Concomitant]
     Dosage: 100 MG, UNK
     Route: 048
  3. FISH OIL [Concomitant]
     Route: 048
  4. ENBREL [Suspect]
     Indication: PRODUCT USED FOR UNKNOWN INDICATION
     Dosage: 50 MG, QWK
     Route: 058
  5. FIBER [Concomitant]
     Dosage: UNK
  6. PROBIOTIC FEMINA [Concomitant]
     Route: 048
  7. ALBUTEROL [Concomitant]

REACTIONS (3)
  - OEDEMA PERIPHERAL [None]
  - VISUAL IMPAIRMENT [None]
  - PAIN IN EXTREMITY [None]
